FAERS Safety Report 4982227-3 (Version None)
Quarter: 2006Q2

REPORT INFORMATION
  Report Type: 
  Country: None (occurrence: None)
  Receive Date: 20060425
  Receipt Date: 20060418
  Transmission Date: 20061013
  Serious: Yes (Other)
  Sender: FDA-Public Use
  Company Number: DE-AVENTIS-200614156GDDC

PATIENT
  Age: 58 Year
  Sex: Male
  Weight: 85 kg

DRUGS (6)
  1. AMARYL [Suspect]
     Dosage: DOSE: 3 MG, 14 IN TOTAL
     Route: 048
  2. DIPIPERON [Suspect]
     Dosage: DOSE: 40 MG, 21 IN TOTAL
     Route: 048
  3. DIPIPERON [Suspect]
     Dosage: DOSE: 8 MG 2 X DAY
  4. RISPERDAL [Suspect]
     Dosage: DOSE: 1 MG, 42 IN TOTAL
     Route: 048
  5. ASPIRIN [Suspect]
     Dosage: DOSE: 100 MG, 14 IN TOTAL
  6. METFORMIN [Suspect]
     Dosage: DOSE: 850, 28 IN TOTAL

REACTIONS (2)
  - OVERDOSE [None]
  - SUICIDE ATTEMPT [None]
